FAERS Safety Report 5676953-0 (Version None)
Quarter: 2008Q1

REPORT INFORMATION
  Report Type: 
  Country: None (occurrence: None)
  Receive Date: 20080324
  Receipt Date: 20080313
  Transmission Date: 20080703
  Serious: Yes (Hospitalization)
  Sender: FDA-Public Use
  Company Number: US-ROCHE-492249

PATIENT
  Age: 67 Year
  Sex: Female
  Weight: 49.4 kg

DRUGS (6)
  1. BONIVA [Suspect]
     Indication: OSTEOPOROSIS
     Route: 042
     Dates: start: 20070101
  2. CALCIUM SUPPLEMENT [Concomitant]
     Dosage: REPORTED AS ^LIQUID FILLED CALCIUM SUPPLEMENT^.
     Dates: start: 20070130
  3. CRESTOR [Concomitant]
  4. PRILOSEC [Concomitant]
  5. ASPIRIN [Concomitant]
  6. XANAX [Concomitant]

REACTIONS (4)
  - DIVERTICULITIS [None]
  - PNEUMONIA [None]
  - SEPSIS [None]
  - SPINAL FRACTURE [None]
